FAERS Safety Report 4333608-2 (Version None)
Quarter: 2004Q2

REPORT INFORMATION
  Report Type: 
  Country: None (occurrence: None)
  Receive Date: 20040406
  Receipt Date: 20040319
  Transmission Date: 20050107
  Serious: No
  Sender: FDA-Public Use
  Company Number: 2004BL002067

PATIENT
  Age: 34 Year
  Sex: Male
  Weight: 83.9154 kg

DRUGS (3)
  1. DESMOPRESSIN ACETATE [Suspect]
     Indication: HYPOPITUITARISM
     Dosage: 1 SPRAY; TWICE A DAY; NASAL
     Route: 045
     Dates: start: 20040303, end: 20040313
  2. TESTOSTERONE [Concomitant]
  3. ^OTHER (UNSPECIFIED) MEDICATION^ [Concomitant]

REACTIONS (1)
  - DEHYDRATION [None]
